FAERS Safety Report 25949848 (Version 2)
Quarter: 2025Q4

REPORT INFORMATION
  Report Type: Spontaneous
  Country: JP (occurrence: JP)
  Receive Date: 20251022
  Receipt Date: 20251204
  Transmission Date: 20260118
  Serious: Yes (Hospitalization, Other)
  Sender: PFIZER
  Company Number: JP-GENMAB-2025-03168

PATIENT
  Age: 56 Year
  Sex: Female

DRUGS (2)
  1. TIVDAK [Suspect]
     Active Substance: TISOTUMAB VEDOTIN-TFTV
     Indication: Adenocarcinoma of the cervix
     Dosage: 2 MILLIGRAM/KILOGRAM, INTRAVENOUS INFUSION
     Route: 042
     Dates: start: 20250820, end: 20250910
  2. BRIMONIDINE TARTRATE [Concomitant]
     Active Substance: BRIMONIDINE TARTRATE
     Indication: Eye disorder prophylaxis
     Dosage: UNK, EYE DROP
     Dates: start: 20250820

REACTIONS (14)
  - Acute kidney injury [Recovered/Resolved]
  - Oedema peripheral [Recovered/Resolved]
  - Hypokalaemia [Unknown]
  - Hyponatraemia [Unknown]
  - Hypocalcaemia [Unknown]
  - Malaise [Unknown]
  - Neutrophil count decreased [Unknown]
  - Decreased appetite [Unknown]
  - Neuropathy peripheral [Unknown]
  - Hypomagnesaemia [Unknown]
  - Hepatic function abnormal [Unknown]
  - Anaemia [Unknown]
  - Dry eye [Unknown]
  - Nausea [Unknown]

NARRATIVE: CASE EVENT DATE: 20250101
